FAERS Safety Report 4654616-8 (Version None)
Quarter: 2005Q2

REPORT INFORMATION
  Report Type: 
  Country: None (occurrence: None)
  Receive Date: 20050504
  Receipt Date: 20050504
  Transmission Date: 20051028
  Serious: Yes (Life-Threatening, Hospitalization)
  Sender: FDA-Public Use
  Company Number: None

PATIENT
  Age: 42 Year
  Sex: Male
  Weight: 71 kg

DRUGS (8)
  1. WARFARIN [Suspect]
     Indication: DEEP VEIN THROMBOSIS
     Dosage: 6.5MG DAILY  ORAL
     Route: 048
     Dates: start: 20040101, end: 20041127
  2. GABAPENTIN [Concomitant]
  3. REYATAZ [Concomitant]
  4. LORAZEPAM [Concomitant]
  5. VENLAFAXINE HCL [Concomitant]
  6. TILEPTAL [Concomitant]
  7. TENOFOVIR [Concomitant]
  8. LAMIVUDINE [Concomitant]

REACTIONS (5)
  - ADHESION [None]
  - BLOODY DISCHARGE [None]
  - DRUG INTERACTION [None]
  - INTERNATIONAL NORMALISED RATIO INCREASED [None]
  - INTESTINAL PERFORATION [None]
